FAERS Safety Report 9268488 (Version 2)
Quarter: 2013Q2

REPORT INFORMATION
  Report Type: Report from Study
  Country: US (occurrence: US)
  Receive Date: 20130502
  Receipt Date: 20130528
  Transmission Date: 20140414
  Serious: Yes (Hospitalization, Other)
  Sender: FDA-Public Use
  Company Number: US-BAXTER-2013BAX013573

PATIENT
  Sex: Female
  Weight: 87.27 kg

DRUGS (43)
  1. GAMMAGARD LIQUID [Suspect]
     Indication: PRIMARY IMMUNODEFICIENCY SYNDROME
     Dosage: 10 GM/100 ML
     Route: 058
     Dates: start: 2011
  2. GAMMAGARD LIQUID [Suspect]
     Dosage: 5 GM/50 ML
     Route: 058
  3. METOPROLOL [Concomitant]
     Indication: PRODUCT USED FOR UNKNOWN INDICATION
     Route: 048
  4. METOPROLOL [Concomitant]
     Route: 065
  5. ATORVASTATIN [Concomitant]
     Indication: BLOOD CHOLESTEROL INCREASED
     Route: 048
  6. LANSOPRAZOLE [Concomitant]
     Indication: GASTRIC DISORDER
     Route: 048
  7. LANSOPRAZOLE [Concomitant]
     Indication: ASTHMA
     Route: 065
  8. LANSOPRAZOLE [Concomitant]
     Indication: CHRONIC OBSTRUCTIVE PULMONARY DISEASE
  9. ESCITALOPRAM [Concomitant]
     Indication: DEPRESSION
     Route: 048
  10. ESCITALOPRAM [Concomitant]
     Route: 065
  11. ALPRAZOLAM [Concomitant]
     Indication: PRODUCT USED FOR UNKNOWN INDICATION
     Route: 048
  12. VENLAFAXINE [Concomitant]
     Indication: DEPRESSION
     Route: 048
  13. NORTRIPTYLINE [Concomitant]
     Indication: SLEEP DISORDER
     Route: 048
  14. NORTRIPTYLINE [Concomitant]
     Indication: MIGRAINE
  15. IMITREX [Concomitant]
     Indication: MIGRAINE
     Route: 048
  16. FOLIC ACID [Concomitant]
     Indication: PRODUCT USED FOR UNKNOWN INDICATION
     Route: 048
  17. POTASSIUM [Concomitant]
     Indication: PRODUCT USED FOR UNKNOWN INDICATION
     Route: 048
  18. MAGNESIUM OXIDE [Concomitant]
     Indication: PRODUCT USED FOR UNKNOWN INDICATION
     Route: 048
  19. CALCIFEROL [Concomitant]
     Indication: PRODUCT USED FOR UNKNOWN INDICATION
     Route: 048
  20. BEXTRA [Concomitant]
     Indication: ARTHRALGIA
     Route: 048
  21. TRAMADOL [Concomitant]
     Indication: ARTHRALGIA
     Dosage: UP TO 4 TIMES DAILY
     Route: 048
  22. LIDODERM [Concomitant]
     Indication: ARTHRALGIA
     Route: 061
  23. LIDOCAINE 5% CREAM [Concomitant]
     Indication: ARTHRALGIA
     Route: 061
  24. ADVAIR [Concomitant]
     Indication: ASTHMA
     Route: 055
  25. ADVAIR [Concomitant]
     Indication: CHRONIC OBSTRUCTIVE PULMONARY DISEASE
  26. XOPENEX NEBULIZER [Concomitant]
     Indication: ASTHMA
     Dosage: UP TO 6 TIMES DAILY
     Route: 055
  27. XOPENEX NEBULIZER [Concomitant]
     Indication: CHRONIC OBSTRUCTIVE PULMONARY DISEASE
  28. XOPENEX INHALER [Concomitant]
     Indication: ASTHMA
     Route: 055
  29. XOPENEX INHALER [Concomitant]
     Indication: CHRONIC OBSTRUCTIVE PULMONARY DISEASE
  30. SPIRIVA [Concomitant]
     Indication: ASTHMA
     Route: 055
  31. SPIRIVA [Concomitant]
     Indication: CHRONIC OBSTRUCTIVE PULMONARY DISEASE
  32. PROVENTIL [Concomitant]
     Indication: ASTHMA
     Route: 055
  33. PROVENTIL [Concomitant]
     Indication: CHRONIC OBSTRUCTIVE PULMONARY DISEASE
  34. ASTELIN [Concomitant]
     Indication: HYPERSENSITIVITY
     Route: 045
  35. TRIAMCINOLONE [Concomitant]
     Indication: PRODUCT USED FOR UNKNOWN INDICATION
     Dosage: 2 SPRAYS TO EACH NOSTRIL
     Route: 045
  36. FUROSEMIDE [Concomitant]
     Indication: FLUID RETENTION
     Dosage: 1-2 TABLETS
     Route: 048
  37. CLOTRIMAZOLE [Concomitant]
     Indication: FUNGAL INFECTION
     Dosage: UP TO 3 TIMES DAILY
     Route: 048
  38. IMODIUM [Concomitant]
     Indication: PRODUCT USED FOR UNKNOWN INDICATION
     Route: 048
  39. GLYBURIDE [Concomitant]
     Indication: DIABETES MELLITUS
     Route: 065
  40. METFORMIN [Concomitant]
     Indication: DIABETES MELLITUS
     Route: 065
  41. PREDNISONE [Concomitant]
     Indication: COUGH
     Route: 065
  42. PREDNISONE [Concomitant]
     Indication: CHEST DISCOMFORT
     Route: 048
     Dates: start: 201304
  43. OXYGEN [Concomitant]
     Indication: PRODUCT USED FOR UNKNOWN INDICATION
     Route: 065

REACTIONS (6)
  - Diabetes mellitus [Recovered/Resolved]
  - Feeling abnormal [Unknown]
  - Cough [Recovered/Resolved]
  - Chest discomfort [Recovered/Resolved]
  - Muscular weakness [Recovering/Resolving]
  - Dysphonia [Unknown]
